FAERS Safety Report 7385320-3 (Version None)
Quarter: 2011Q1

REPORT INFORMATION
  Report Type: 
  Country: None (occurrence: None)
  Receive Date: 20110330
  Receipt Date: 20100820
  Transmission Date: 20110831
  Serious: No
  Sender: FDA-Public Use
  Company Number: US-MYLANLABS-2010S1013117

PATIENT
  Age: 58 Year
  Sex: Female

DRUGS (4)
  1. LIBRIUM [Concomitant]
  2. LAMICTAL [Concomitant]
  3. EMSAM [Suspect]
     Indication: DEPRESSION
     Dosage: CHANGED QD
     Route: 062
     Dates: start: 20090225
  4. SEROQUEL [Concomitant]

REACTIONS (2)
  - APPLICATION SITE RASH [None]
  - APPLICATION SITE URTICARIA [None]
